FAERS Safety Report 14420376 (Version 1)
Quarter: 2018Q1

REPORT INFORMATION
  Report Type: Spontaneous
  Country: US (occurrence: US)
  Receive Date: 20180122
  Receipt Date: 20180122
  Transmission Date: 20180509
  Serious: No
  Sender: FDA-Public Use
  Company Number: US-ROCHE-1969872

PATIENT
  Age: 50 Year
  Sex: Male

DRUGS (2)
  1. RITUXAN [Suspect]
     Active Substance: RITUXIMAB
     Indication: LYMPHOMA
     Route: 065
  2. BENDAMUSTINE [Concomitant]
     Active Substance: BENDAMUSTINE
     Indication: LYMPHOMA

REACTIONS (5)
  - Serum sickness [Unknown]
  - Pyrexia [Unknown]
  - Platelet count decreased [Unknown]
  - Splenomegaly [Unknown]
  - Arthralgia [Unknown]
